FAERS Safety Report 20681415 (Version 1)
Quarter: 2022Q2

REPORT INFORMATION
  Report Type: Spontaneous
  Country: US (occurrence: US)
  Receive Date: 20220406
  Receipt Date: 20220406
  Transmission Date: 20220720
  Serious: No
  Sender: FDA-Public Use
  Company Number: US-SA-SAC20220405001486

PATIENT
  Sex: Female

DRUGS (1)
  1. DUPIXENT [Suspect]
     Active Substance: DUPILUMAB
     Indication: Hepatitis C
     Dosage: 300 MG, QOW
     Route: 058

REACTIONS (2)
  - Adverse event [Not Recovered/Not Resolved]
  - Product use in unapproved indication [Unknown]
